FAERS Safety Report 8166474-8 (Version None)
Quarter: 2012Q1

REPORT INFORMATION
  Report Type: 
  Country: None (occurrence: None)
  Receive Date: 20120227
  Receipt Date: 20111006
  Transmission Date: 20120608
  Serious: No
  Sender: FDA-Public Use
  Company Number: US-MYLANLABS-2011S1018161

PATIENT
  Age: 28 Year
  Sex: Female
  Weight: 73.94 kg

DRUGS (3)
  1. AMNESTEEM [Suspect]
     Indication: HIDRADENITIS
     Route: 048
     Dates: start: 20110626, end: 20110824
  2. LEVOTHYROXINE SODIUM [Concomitant]
  3. AMNESTEEM [Suspect]
     Indication: ACNE CYSTIC
     Route: 048
     Dates: start: 20110626, end: 20110824

REACTIONS (3)
  - BEDRIDDEN [None]
  - ARTHRALGIA [None]
  - GAIT DISTURBANCE [None]
